FAERS Safety Report 18178362 (Version 1)
Quarter: 2020Q3

REPORT INFORMATION
  Report Type: Spontaneous
  Country: AT (occurrence: AT)
  Receive Date: 20200821
  Receipt Date: 20200821
  Transmission Date: 20201103
  Serious: Yes (Other)
  Sender: FDA-Public Use
  Company Number: AT-SUN PHARMACEUTICAL INDUSTRIES LTD-2020R1-257815

PATIENT
  Sex: Female
  Weight: 2.82 kg

DRUGS (3)
  1. CHLOROQUINE. [Suspect]
     Active Substance: CHLOROQUINE
     Indication: ANGINA PECTORIS
     Dosage: UNK
     Route: 064
  2. AMBROXOL [Suspect]
     Active Substance: AMBROXOL
     Indication: UPPER RESPIRATORY TRACT INFECTION
     Dosage: UNK
     Route: 064
  3. ACETAMINOPHEN. [Suspect]
     Active Substance: ACETAMINOPHEN
     Indication: PRODUCT USED FOR UNKNOWN INDICATION
     Dosage: UNK
     Route: 064

REACTIONS (2)
  - Ventricular septal defect [Unknown]
  - Foetal exposure during pregnancy [Unknown]
